FAERS Safety Report 6339974-0 (Version None)
Quarter: 2009Q3

REPORT INFORMATION
  Report Type: 
  Country: None (occurrence: None)
  Receive Date: 20090903
  Receipt Date: 20090824
  Transmission Date: 20100115
  Serious: Yes (Other)
  Sender: FDA-Public Use
  Company Number: DE-WYE-H10758309

PATIENT
  Sex: Male

DRUGS (3)
  1. PANTOPRAZOLE SODIUM [Suspect]
     Dosage: UNSPECIFIED
     Route: 065
  2. CLARITHROMYCIN [Suspect]
     Dosage: UNSPECIFIED
     Route: 065
  3. AMOXICILLIN [Suspect]
     Dosage: UNSPECIFIED
     Route: 065

REACTIONS (8)
  - ASPARTATE AMINOTRANSFERASE INCREASED [None]
  - BLOOD BILIRUBIN INCREASED [None]
  - CHROMATURIA [None]
  - FAECES DISCOLOURED [None]
  - GAMMA-GLUTAMYLTRANSFERASE INCREASED [None]
  - LABORATORY TEST ABNORMAL [None]
  - NAUSEA [None]
  - YELLOW SKIN [None]
